FAERS Safety Report 21275228 (Version 2)
Quarter: 2022Q3

REPORT INFORMATION
  Report Type: Spontaneous
  Country: EG (occurrence: EG)
  Receive Date: 20220831
  Receipt Date: 20220914
  Transmission Date: 20221027
  Serious: Yes (Life-Threatening, Hospitalization, Other)
  Sender: FDA-Public Use
  Company Number: EG-TAKEDA-2022TUS059748

PATIENT
  Age: 30 Year
  Sex: Female

DRUGS (2)
  1. ENTYVIO [Suspect]
     Active Substance: VEDOLIZUMAB
     Indication: Crohn^s disease
     Dosage: UNK
     Route: 058
  2. STELARA [Concomitant]
     Active Substance: USTEKINUMAB
     Indication: Crohn^s disease
     Dosage: UNK

REACTIONS (7)
  - Disease complication [Unknown]
  - Crohn^s disease [Unknown]
  - Hospitalisation [Unknown]
  - Treatment delayed [Unknown]
  - Emotional distress [Unknown]
  - Inability to afford medication [Unknown]
  - Drug ineffective [Unknown]
